FAERS Safety Report 7033272-8 (Version None)
Quarter: 2010Q4

REPORT INFORMATION
  Report Type: 
  Country: None (occurrence: None)
  Receive Date: 20101007
  Receipt Date: 20100927
  Transmission Date: 20110411
  Serious: Yes (Other)
  Sender: FDA-Public Use
  Company Number: A0883639A

PATIENT
  Sex: Female

DRUGS (3)
  1. LAMICTAL [Suspect]
     Indication: PRODUCT USED FOR UNKNOWN INDICATION
     Dates: start: 20100901
  2. CLOZARIL [Suspect]
     Indication: SCHIZOPHRENIA
     Route: 065
  3. NEUPOGEN [Concomitant]
     Route: 065

REACTIONS (2)
  - DRUG INTERACTION [None]
  - NEUTROPENIA [None]
